FAERS Safety Report 6332789-9 (Version None)
Quarter: 2009Q3

REPORT INFORMATION
  Report Type: 
  Country: None (occurrence: None)
  Receive Date: 20090828
  Receipt Date: 20090820
  Transmission Date: 20100115
  Serious: Yes (Life-Threatening, Hospitalization)
  Sender: FDA-Public Use
  Company Number: B0589794A

PATIENT
  Sex: Female

DRUGS (7)
  1. ZANTAC [Suspect]
     Indication: CHEMOTHERAPY
     Dosage: 50MG PER DAY
     Route: 065
     Dates: start: 20090819
  2. TS-1 [Concomitant]
     Indication: CHEMOTHERAPY
     Dosage: 20MG THREE TIMES PER DAY
     Route: 048
     Dates: start: 20090819
  3. UNKNOWN DRUG [Concomitant]
     Indication: CHEMOTHERAPY
     Dosage: 100ML PER DAY
     Dates: start: 20090819
  4. KYTRIL [Concomitant]
     Indication: CHEMOTHERAPY
     Dosage: 3MG PER DAY
     Route: 042
     Dates: start: 20090819
  5. DECADRON [Concomitant]
     Indication: CHEMOTHERAPY
     Dosage: 20MG PER DAY
     Dates: start: 20090819
  6. DIPHENHYDRAMINE HCL [Concomitant]
     Indication: CHEMOTHERAPY
     Dosage: 50MG PER DAY
     Route: 048
     Dates: start: 20090819
  7. FESIN [Concomitant]
     Route: 042
     Dates: start: 20090401

REACTIONS (5)
  - ANAPHYLACTIC SHOCK [None]
  - BLOOD PRESSURE DECREASED [None]
  - CYANOSIS [None]
  - INCONTINENCE [None]
  - LOSS OF CONSCIOUSNESS [None]
